FAERS Safety Report 21843199 (Version 2)
Quarter: 2023Q1

REPORT INFORMATION
  Report Type: Report from Study
  Country: FR (occurrence: None)
  Receive Date: 20230110
  Receipt Date: 20230203
  Transmission Date: 20230417
  Serious: Yes (Hospitalization)
  Sender: FDA-Public Use
  Company Number: 2023A000186

PATIENT
  Age: 71 Year
  Sex: Male
  Weight: 77 kg

DRUGS (1)
  1. EVUSHELD [Suspect]
     Active Substance: CILGAVIMAB\TIXAGEVIMAB
     Indication: COVID-19 prophylaxis
     Dosage: 600MG (CILGAVIMAB, TIXAGEVIMAB)600.0MG UNKNOWN
     Route: 030
     Dates: start: 20220808, end: 20220808

REACTIONS (2)
  - Bradycardia [Recovered/Resolved]
  - Atrioventricular block [Recovered/Resolved]

NARRATIVE: CASE EVENT DATE: 20220820
